FAERS Safety Report 6000385-9 (Version None)
Quarter: 2008Q4

REPORT INFORMATION
  Report Type: 
  Country: None (occurrence: None)
  Receive Date: 20081215
  Receipt Date: 20071217
  Transmission Date: 20090506
  Serious: No
  Sender: FDA-Public Use
  Company Number: US-AMGEN-KDL243460

PATIENT
  Sex: Female

DRUGS (1)
  1. ENBREL [Suspect]
     Indication: RHEUMATOID ARTHRITIS
     Route: 058
     Dates: start: 20051101

REACTIONS (6)
  - ARTHRALGIA [None]
  - HEADACHE [None]
  - INJECTION SITE HAEMATOMA [None]
  - JOINT RANGE OF MOTION DECREASED [None]
  - MUSCULOSKELETAL PAIN [None]
  - WRIST FRACTURE [None]
